FAERS Safety Report 20070569 (Version 1)
Quarter: 2021Q4

REPORT INFORMATION
  Report Type: Spontaneous
  Country: CA (occurrence: CA)
  Receive Date: 20211115
  Receipt Date: 20211115
  Transmission Date: 20220303
  Serious: Yes (Other)
  Sender: FDA-Public Use
  Company Number: CA-TEVA-2021-CA-1976568

PATIENT
  Age: 42 Year
  Sex: Male
  Weight: 85 kg

DRUGS (2)
  1. METHOTREXATE [Suspect]
     Active Substance: METHOTREXATE
     Indication: Product used for unknown indication
     Route: 058
  2. PREDNISONE ACETATE [Concomitant]
     Active Substance: PREDNISONE ACETATE

REACTIONS (7)
  - Polyarthritis [Unknown]
  - Acute kidney injury [Unknown]
  - Glomerulonephritis [Unknown]
  - Haematuria [Unknown]
  - Malaise [Unknown]
  - Incorrect route of product administration [Unknown]
  - Off label use [Unknown]
